FAERS Safety Report 19665700 (Version 1)
Quarter: 2021Q3

REPORT INFORMATION
  Report Type: Spontaneous
  Country: FR (occurrence: FR)
  Receive Date: 20210806
  Receipt Date: 20210806
  Transmission Date: 20211014
  Serious: Yes (Other)
  Sender: FDA-Public Use
  Company Number: FR-ORGANON-O2108FRA000265

PATIENT
  Age: 37 Year
  Sex: Female

DRUGS (1)
  1. NEXPLANON [Suspect]
     Active Substance: ETONOGESTREL
     Indication: TRANSDERMAL CONTRACEPTION
     Dosage: 1 DOSAGE FORM, ONCE (1 TOTAL) (IMPLANT FOR SUBCUTANEOUS USE)
     Route: 058
     Dates: start: 201807, end: 20210416

REACTIONS (2)
  - Drug ineffective [Not Recovered/Not Resolved]
  - Pregnancy [Not Recovered/Not Resolved]

NARRATIVE: CASE EVENT DATE: 20210317
